FAERS Safety Report 8852269 (Version 1)
Quarter: 2012Q4

REPORT INFORMATION
  Report Type: 
  Country: US (occurrence: US)
  Receive Date: 20121022
  Receipt Date: 20121022
  Transmission Date: 20130627
  Serious: No
  Sender: FDA-Public Use
  Company Number: US-ASTRAZENECA-2012SE76132

PATIENT
  Age: 64 Year
  Sex: Female
  Weight: 93.4 kg

DRUGS (8)
  1. FASLODEX [Suspect]
     Indication: BREAST CANCER METASTATIC
     Route: 030
     Dates: start: 201205
  2. GABAPENTIN [Concomitant]
     Indication: NEURALGIA
     Dosage: DAILY
     Route: 048
  3. SINGULAIR [Concomitant]
     Indication: MULTIPLE ALLERGIES
     Dosage: DAILY
     Route: 048
  4. LORAZEPAM [Concomitant]
     Indication: MUSCLE RELAXANT THERAPY
     Dosage: AS NEEDED
     Route: 048
  5. MULTIVITAMINS [Concomitant]
  6. MINERALS [Concomitant]
  7. CALCIUM [Concomitant]
  8. CRANBERRY [Concomitant]

REACTIONS (13)
  - Aspartate aminotransferase increased [Unknown]
  - Platelet count decreased [Unknown]
  - Myalgia [Unknown]
  - Albumin globulin ratio increased [Unknown]
  - Injection site anaesthesia [Recovered/Resolved]
  - Injection site pain [Recovered/Resolved]
  - Injection site mass [Not Recovered/Not Resolved]
  - Nausea [Unknown]
  - Fatigue [Unknown]
  - Asthenia [Unknown]
  - Injection site pain [Unknown]
  - Injection site bruising [Unknown]
  - Off label use [Unknown]
